FAERS Safety Report 6468633-9 (Version None)
Quarter: 2009Q4

REPORT INFORMATION
  Report Type: 
  Country: None (occurrence: None)
  Receive Date: 20091203
  Receipt Date: 20091127
  Transmission Date: 20100525
  Serious: Yes (Other)
  Sender: FDA-Public Use
  Company Number: NO-ROCHE-671391

PATIENT
  Sex: Male

DRUGS (11)
  1. TAMIFLU [Suspect]
     Indication: DRUG USE FOR UNKNOWN INDICATION
     Route: 048
     Dates: end: 20091116
  2. PANDEMRIX [Suspect]
     Dosage: DOSE REPORTED AS DF DOSAGE FORM, FREQUENCY FIRST
     Route: 051
     Dates: start: 20091112
  3. INFLUVAC [Suspect]
     Dosage: DOSE REPORTED AS DF DOSAGE FORM
     Route: 051
     Dates: start: 20091007
  4. COAPROVEL [Concomitant]
     Dosage: DOSE 150 MG/12.5 MG
     Route: 048
  5. SIMVASTATIN [Concomitant]
     Dosage: DOSE 40 MG.
     Route: 048
  6. PLAVIX [Concomitant]
     Dosage: DOSE 75 MG.
     Route: 048
  7. BECOTIDE NASAL [Concomitant]
     Dosage: DOSE REPORTED AS 1-2 DOSES 50 MCG/DOSE, ROUTE NASAL.
     Route: 050
  8. SEREVENT AEROSOL [Concomitant]
     Dosage: DOSE 25 MCG/DOSE.
     Route: 055
  9. OXIS TURBOHALER [Concomitant]
     Dosage: DOSE 9 MCG/DOSE.
     Route: 055
  10. PULMICORT [Concomitant]
     Dosage: DOSE REPORTED AS 400 MCG/DOSE, I INHALATION TWICE DAILY.
     Route: 055
  11. ALBYL E [Concomitant]
     Route: 048

REACTIONS (8)
  - CHILLS [None]
  - DECREASED APPETITE [None]
  - ERYTHEMA MULTIFORME [None]
  - MALAISE [None]
  - PYREXIA [None]
  - SYNCOPE [None]
  - URTICARIA [None]
  - VASCULITIS [None]
